FAERS Safety Report 12217616 (Version 2)
Quarter: 2017Q2

REPORT INFORMATION
  Report Type: Spontaneous
  Country: PL (occurrence: PL)
  Receive Date: 20160329
  Receipt Date: 20170525
  Transmission Date: 20170830
  Serious: Yes (Other)
  Sender: FDA-Public Use
  Company Number: PL-SUN PHARMACEUTICAL INDUSTRIES LTD-2016R1-113754

PATIENT
  Age: 18 Year
  Sex: Male

DRUGS (2)
  1. TETRABENAZINE. [Suspect]
     Active Substance: TETRABENAZINE
     Dosage: 37.5 MG, DAILY
     Route: 065
  2. TETRABENAZINE. [Suspect]
     Active Substance: TETRABENAZINE
     Indication: TOURETTE^S DISORDER
     Dosage: 62.5 MG, DAILY
     Route: 065

REACTIONS (5)
  - Dystonia [Recovered/Resolved]
  - Oculogyric crisis [Recovered/Resolved]
  - Salivary hypersecretion [Recovered/Resolved]
  - Dysarthria [Recovered/Resolved]
  - Torticollis [Recovered/Resolved]
